FAERS Safety Report 14892919 (Version 1)
Quarter: 2018Q2

REPORT INFORMATION
  Report Type: Spontaneous
  Country: US (occurrence: US)
  Receive Date: 20180514
  Receipt Date: 20180514
  Transmission Date: 20180711
  Serious: No
  Sender: FDA-Public Use
  Company Number: US-JNJFOC-20180434846

PATIENT
  Age: 20 Year
  Sex: Male

DRUGS (11)
  1. ZOFRAN [Concomitant]
     Active Substance: ONDANSETRON HYDROCHLORIDE
     Indication: MENTAL STATUS CHANGES
     Dosage: PRN (AS NEEDED)
     Route: 042
     Dates: start: 20170210, end: 20170210
  2. SALINE [Concomitant]
     Active Substance: SODIUM CHLORIDE
     Indication: MENTAL STATUS CHANGES
     Dosage: ONCE (ONE TIME??INTERVENTION)
     Route: 040
     Dates: start: 20170210, end: 20170210
  3. VITAMIN C [Concomitant]
     Active Substance: ASCORBIC ACID
     Indication: ROUTINE HEALTH MAINTENANCE
     Route: 048
     Dates: start: 20160616
  4. TYLENOL [Suspect]
     Active Substance: ACETAMINOPHEN
     Route: 048
  5. HYDROXYTRYPTOPHAN [Concomitant]
     Active Substance: OXITRIPTAN
     Indication: DEPRESSION
     Route: 048
     Dates: start: 2012
  6. TRAZODONE [Concomitant]
     Active Substance: TRAZODONE HYDROCHLORIDE
     Indication: INSOMNIA
     Dosage: PRN (AS NEEDED
     Route: 048
  7. TYLENOL [Suspect]
     Active Substance: ACETAMINOPHEN
     Indication: MENTAL STATUS CHANGES
     Dosage: ONCE (ONE TIME INTERVENTION)
     Route: 048
     Dates: start: 20170210, end: 20170210
  8. ABILIFY MAINTENA [Concomitant]
     Active Substance: ARIPIPRAZOLE
     Indication: PSYCHOTIC DISORDER
     Route: 030
     Dates: start: 20170519
  9. MELATONIN [Concomitant]
     Active Substance: MELATONIN
     Indication: INSOMNIA
     Route: 048
     Dates: start: 20160616
  10. ABILIFY [Concomitant]
     Active Substance: ARIPIPRAZOLE
     Indication: PSYCHOTIC DISORDER
     Dosage: DAILY
     Route: 048
     Dates: start: 20170525
  11. ATIVAN [Concomitant]
     Active Substance: LORAZEPAM
     Indication: DEPRESSION
     Dosage: PRN (AS NEEDED)
     Route: 048
     Dates: start: 20170525

REACTIONS (2)
  - Off label use [Unknown]
  - Product use in unapproved indication [Unknown]

NARRATIVE: CASE EVENT DATE: 20170210
